FAERS Safety Report 4612272-9 (Version None)
Quarter: 2005Q1

REPORT INFORMATION
  Report Type: 
  Country: None (occurrence: None)
  Receive Date: 20050316
  Receipt Date: 20050228
  Transmission Date: 20050727
  Serious: Yes (Hospitalization, Other)
  Sender: FDA-Public Use
  Company Number: USA040361689

PATIENT
  Age: 65 Year
  Sex: Female
  Weight: 61 kg

DRUGS (22)
  1. FORTEO [Suspect]
     Indication: OSTEOPOROSIS
     Dosage: 20 UG/1 DAY
     Dates: start: 20030101
  2. TAMBOCOR [Concomitant]
  3. ALDACTONE [Concomitant]
  4. LEVOXYL [Concomitant]
  5. VIOXX [Concomitant]
  6. ACETYLSALICYLIC ACID SRT [Concomitant]
  7. PERCOCET [Concomitant]
  8. WELLBUTRIN [Concomitant]
  9. MIDRIN [Concomitant]
  10. ULTRAM [Concomitant]
  11. RHINOCORT [Concomitant]
  12. IMITREX [Concomitant]
  13. FOLTX [Concomitant]
  14. PRILOSEC [Concomitant]
  15. AXERT [Concomitant]
  16. KLONOPIN [Concomitant]
  17. NEXIUM [Concomitant]
  18. MACROBID [Concomitant]
  19. REMERON [Concomitant]
  20. NEURONTIN [Concomitant]
  21. MELATONIN [Concomitant]
  22. VITAMIN E [Concomitant]

REACTIONS (7)
  - BONE DENSITY DECREASED [None]
  - CONTUSION [None]
  - FALL [None]
  - FEMUR FRACTURE [None]
  - HIP FRACTURE [None]
  - JOINT SPRAIN [None]
  - PHARMACEUTICAL PRODUCT COMPLAINT [None]
